FAERS Safety Report 5088825-3 (Version None)
Quarter: 2006Q3

REPORT INFORMATION
  Report Type: 
  Country: None (occurrence: None)
  Receive Date: 20060824
  Receipt Date: 20060824
  Transmission Date: 20061208
  Serious: Yes (Hospitalization)
  Sender: FDA-Public Use
  Company Number: None

PATIENT
  Sex: Male
  Weight: 106 kg

DRUGS (2)
  1. CYTARABINE [Suspect]
     Dosage: 1575 MG
     Dates: start: 20060804
  2. DAUNORUBICIN HCL [Suspect]
     Dosage: 405 MG
     Dates: start: 20060804

REACTIONS (11)
  - GANGRENE [None]
  - NEUTROPENIA [None]
  - OEDEMA GENITAL [None]
  - PENILE PAIN [None]
  - PENILE SWELLING [None]
  - PENILE ULCERATION [None]
  - PHIMOSIS [None]
  - POST PROCEDURAL CELLULITIS [None]
  - SCRATCH [None]
  - SKIN NECROSIS [None]
  - THERAPY NON-RESPONDER [None]
